FAERS Safety Report 9069017 (Version 1)
Quarter: 2013Q1

REPORT INFORMATION
  Report Type: Spontaneous
  Country: US (occurrence: None)
  Receive Date: 20130213
  Receipt Date: 20130213
  Transmission Date: 20140127
  Serious: Yes (Hospitalization)
  Sender: FDA-Public Use
  Company Number: None

PATIENT
  Sex: Male
  Weight: 68.6 kg

DRUGS (13)
  1. AFINITOR [Suspect]
     Dates: end: 20120722
  2. OCTREOTIDE ACETATE [Suspect]
     Dates: end: 20120703
  3. ACCUPRIL [Concomitant]
  4. ACETAMINOPHEN [Concomitant]
  5. AFINITOR [Concomitant]
  6. ASPIRIN [Concomitant]
  7. FENTANYL PATCH [Concomitant]
  8. GLUCOPHAGE [Concomitant]
  9. HYDROCHLOROTHIAZIDE [Concomitant]
  10. MICRONASE [Concomitant]
  11. MYCELEX [Concomitant]
  12. PERCOCET [Concomitant]
  13. SIMVASTATIN [Concomitant]

REACTIONS (2)
  - Muscular weakness [None]
  - Dizziness [None]
